FAERS Safety Report 4307736-1 (Version None)
Quarter: 2004Q1

REPORT INFORMATION
  Report Type: 
  Country: None (occurrence: None)
  Receive Date: 20040227
  Receipt Date: 20040227
  Transmission Date: 20041129
  Serious: Yes (Hospitalization)
  Sender: FDA-Public Use
  Company Number: None

PATIENT
  Sex: Male

DRUGS (4)
  1. PROCRIT 40,000 IU [Suspect]
     Indication: ANAEMIA
     Dosage: 40,000 IU SQ WEEKLY
     Route: 058
     Dates: start: 20040205
  2. PROCRIT 40,000 IU [Suspect]
     Indication: ANAEMIA
     Dosage: 40,000 IU SQ WEEKLY
     Route: 058
     Dates: start: 20040212
  3. FENTANYL [Concomitant]
  4. MORPHNE SULFATE [Concomitant]

REACTIONS (9)
  - ANOREXIA [None]
  - COUGH [None]
  - DEHYDRATION [None]
  - FATIGUE [None]
  - HEADACHE [None]
  - HEART RATE INCREASED [None]
  - HYPOTENSION [None]
  - MALAISE [None]
  - PYREXIA [None]
